FAERS Safety Report 10601220 (Version 3)
Quarter: 2015Q1

REPORT INFORMATION
  Report Type: Report from Study
  Country: US (occurrence: US)
  Receive Date: 20141124
  Receipt Date: 20150303
  Transmission Date: 20150720
  Serious: Yes (Hospitalization)
  Sender: FDA-Public Use
  Company Number: US-JNJFOC-20141110831

PATIENT
  Age: 63 Year
  Sex: Male
  Weight: 61.8 kg

DRUGS (10)
  1. VITAMIN D [Concomitant]
     Active Substance: CHOLECALCIFEROL
  2. TRAZODONE [Concomitant]
     Active Substance: TRAZODONE HYDROCHLORIDE
  3. SOFOSBUVIR [Suspect]
     Active Substance: SOFOSBUVIR
     Indication: HEPATITIS C
     Dates: start: 20140718, end: 20141006
  4. RIFAXIMIN [Concomitant]
     Active Substance: RIFAXIMIN
  5. MULTIVITAMINS [Concomitant]
     Active Substance: VITAMINS
  6. RIBAVIRIN. [Suspect]
     Active Substance: RIBAVIRIN
     Indication: HEPATITIS C
     Dates: start: 20140718
  7. MELOXICAM. [Concomitant]
     Active Substance: MELOXICAM
  8. TYLENOL [Concomitant]
     Active Substance: ACETAMINOPHEN
  9. SIMEPREVIR [Suspect]
     Active Substance: SIMEPREVIR
     Indication: HEPATITIS C
     Dosage: 150
     Route: 048
     Dates: start: 20140718, end: 20141006
  10. ALPRAZOLAM. [Concomitant]
     Active Substance: ALPRAZOLAM

REACTIONS (2)
  - Wound secretion [Recovering/Resolving]
  - Ascites [Recovering/Resolving]

NARRATIVE: CASE EVENT DATE: 20140926
